FAERS Safety Report 22820983 (Version 2)
Quarter: 2024Q3

REPORT INFORMATION
  Report Type: Spontaneous
  Country: US (occurrence: US)
  Receive Date: 20230814
  Receipt Date: 20240814
  Transmission Date: 20241016
  Serious: No
  Sender: AEGERION
  Company Number: US-AMRYT PHARMACEUTICALS DAC-AEGR006151

PATIENT
  Sex: Female
  Weight: 58.957 kg

DRUGS (9)
  1. JUXTAPID [Suspect]
     Active Substance: LOMITAPIDE MESYLATE
     Indication: Type IIa hyperlipidaemia
     Dosage: 30 MILLIGRAM, AT BED TIME
     Route: 048
  2. JUXTAPID [Suspect]
     Active Substance: LOMITAPIDE MESYLATE
     Indication: Type IIa hyperlipidaemia
  3. OMEGA 3 6 9 COMPLEX [Concomitant]
     Indication: Product used for unknown indication
     Dosage: 1200 MILLIGRAM
  4. BRIMONIDINE TARTRATE\DORZOLAMIDE HYDROCHLORIDE\TIMOLOL MALEATE [Concomitant]
     Active Substance: BRIMONIDINE TARTRATE\DORZOLAMIDE HYDROCHLORIDE\TIMOLOL MALEATE
     Indication: Product used for unknown indication
  5. VITAMIN E [Concomitant]
     Active Substance: .ALPHA.-TOCOPHEROL
     Indication: Product used for unknown indication
  6. LISINOPRIL [Concomitant]
     Active Substance: LISINOPRIL
     Indication: Product used for unknown indication
  7. HYDROCHLOROTHIAZIDE [Concomitant]
     Active Substance: HYDROCHLOROTHIAZIDE
     Indication: Product used for unknown indication
  8. ASPIRIN [Concomitant]
     Active Substance: ASPIRIN
     Indication: Product used for unknown indication
  9. CHOLECALCIFEROL\FISH OIL [Concomitant]
     Active Substance: CHOLECALCIFEROL\FISH OIL
     Indication: Product used for unknown indication

REACTIONS (13)
  - Hypertension [Unknown]
  - Frustration tolerance decreased [Unknown]
  - Anxiety [Unknown]
  - Ear pain [Unknown]
  - COVID-19 [Recovering/Resolving]
  - Feeling abnormal [Unknown]
  - Eating disorder [Unknown]
  - Dyspnoea [Unknown]
  - Adverse drug reaction [Unknown]
  - Influenza [Not Recovered/Not Resolved]
  - Abdominal discomfort [Unknown]
  - Nasopharyngitis [Unknown]
  - Weight decreased [Unknown]
